FAERS Safety Report 10832223 (Version 1)
Quarter: 2015Q1

REPORT INFORMATION
  Report Type: Spontaneous
  Country: US (occurrence: US)
  Receive Date: 20150219
  Receipt Date: 20150219
  Transmission Date: 20150721
  Serious: No
  Sender: FDA-Public Use
  Company Number: US-RECKITT BENCKISER PHARMACEUTICAL, INC-RB-63218-2014

PATIENT

DRUGS (2)
  1. SUBOXONE [Suspect]
     Active Substance: BUPRENORPHINE HYDROCHLORIDE\NALOXONE HYDROCHLORIDE
     Dosage: UNKNOWN DOSING DETAILS (WEANING SELF DOWN)
     Route: 065
  2. SUBOXONE [Suspect]
     Active Substance: BUPRENORPHINE HYDROCHLORIDE\NALOXONE HYDROCHLORIDE
     Indication: PRODUCT USED FOR UNKNOWN INDICATION
     Dosage: DOSING DETAILS UNKNOWN
     Route: 065

REACTIONS (7)
  - Insomnia [Recovered/Resolved]
  - Intentional underdose [Recovered/Resolved]
  - Cold sweat [Recovered/Resolved]
  - Irritability [Unknown]
  - Unevaluable event [Recovered/Resolved]
  - Drug withdrawal syndrome [Recovered/Resolved]
  - Lacrimation increased [Recovered/Resolved]
